FAERS Safety Report 4732875-0 (Version None)
Quarter: 2005Q3

REPORT INFORMATION
  Report Type: 
  Country: None (occurrence: None)
  Receive Date: 20050803
  Receipt Date: 20050419
  Transmission Date: 20060218
  Serious: No
  Sender: FDA-Public Use
  Company Number: US-GLAXOSMITHKLINE-A0554837A

PATIENT
  Age: 53 Year
  Sex: Female

DRUGS (8)
  1. AVANDAMET [Suspect]
     Dosage: 1TAB PER DAY
     Route: 048
     Dates: start: 20050201
  2. DARVOCET [Concomitant]
  3. IMDUR [Concomitant]
  4. VITORIN [Concomitant]
  5. TRICOR [Concomitant]
  6. ALBUTEROL [Concomitant]
  7. ALBUTEROL [Concomitant]
  8. FLEXERIL [Concomitant]

REACTIONS (4)
  - HYPOAESTHESIA [None]
  - MUSCLE SPASMS [None]
  - PALPITATIONS [None]
  - PARAESTHESIA [None]
